FAERS Safety Report 8220741-8 (Version None)
Quarter: 2012Q1

REPORT INFORMATION
  Report Type: 
  Country: None (occurrence: None)
  Receive Date: 20120320
  Receipt Date: 20120312
  Transmission Date: 20120608
  Serious: Yes (Other)
  Sender: FDA-Public Use
  Company Number: CA-UCBSA-047637

PATIENT
  Age: 44 Year
  Sex: Female
  Weight: 77 kg

DRUGS (11)
  1. AMITRIPTYLINE HCL [Concomitant]
     Indication: TEMPOROMANDIBULAR JOINT SYNDROME
     Dosage: 24 MG ONCE IN EVERY HOUR
     Route: 048
  2. FLOVENT [Concomitant]
     Indication: ASTHMA
     Dosage: USED AS NECESSARY
     Route: 055
  3. VENTOLIN [Concomitant]
     Indication: ASTHMA
     Dosage: USED AS NECESSARY
     Route: 055
  4. CIMZIA [Suspect]
     Route: 058
  5. RAMIPRIL [Concomitant]
     Indication: HYPERTENSION
  6. MACROBID [Concomitant]
     Indication: URINARY TRACT INFECTION
     Dosage: 1 TAB QHS
     Route: 048
     Dates: start: 20111224
  7. CIMZIA [Suspect]
     Indication: RHEUMATOID ARTHRITIS
     Route: 058
     Dates: start: 20111208
  8. RANITIDINE [Concomitant]
     Indication: HYPERCHLORHYDRIA
     Route: 048
  9. AMITRIPTYLINE HCL [Concomitant]
     Indication: FIBROMYALGIA
     Dosage: 24 MG ONCE IN EVERY HOUR
     Route: 048
  10. EMTEC [Concomitant]
     Indication: SLEEP DISORDER
     Dosage: 30 MG ONCE EVERY HOUR AS NECESSARY
     Route: 048
  11. ATIVAN [Concomitant]
     Indication: SLEEP DISORDER
     Dosage: 1 MG EVERY HOUR AS NECESSARY
     Route: 060

REACTIONS (6)
  - URINARY TRACT INFECTION [None]
  - DYSPHONIA [None]
  - SQUAMOUS CELL CARCINOMA [None]
  - URINE CYTOLOGY ABNORMAL [None]
  - DYSPNOEA [None]
  - ASTHMA [None]
